FAERS Safety Report 8566536-7 (Version None)
Quarter: 2012Q3

REPORT INFORMATION
  Report Type: 
  Country: None (occurrence: None)
  Receive Date: 20120730
  Receipt Date: 20120730
  Transmission Date: 20120928
  Serious: No
  Sender: FDA-Public Use
  Company Number: None

PATIENT
  Age: 5 Year
  Sex: Male
  Weight: 27.6694 kg

DRUGS (2)
  1. XYNTHA [Suspect]
     Indication: FACTOR VIII DEFICIENCY
  2. XYNTHA [Suspect]
     Indication: PROPHYLAXIS

REACTIONS (5)
  - FLATULENCE [None]
  - ABDOMINAL DISTENSION [None]
  - DIARRHOEA [None]
  - ASTHENIA [None]
  - DIET REFUSAL [None]
